FAERS Safety Report 6780408-X (Version None)
Quarter: 2010Q2

REPORT INFORMATION
  Report Type: 
  Country: None (occurrence: None)
  Receive Date: 20100620
  Receipt Date: 20100611
  Transmission Date: 20101027
  Serious: Yes (Other)
  Sender: FDA-Public Use
  Company Number: US-JNJFOC-20100500796

PATIENT
  Age: 12 Month
  Sex: Female

DRUGS (5)
  1. CONCENTRATED TYLENOL INFANT DROPS [Suspect]
     Indication: PYREXIA
  2. CONCENTRATED TYLENOL INFANT DROPS [Suspect]
     Indication: EAR INFECTION
  3. CONCENTRATED MOTRIN INFANTS DROPS [Suspect]
     Indication: PYREXIA
  4. CONCENTRATED MOTRIN INFANTS DROPS [Suspect]
     Indication: EAR INFECTION
  5. ANTIBIOTIC [Concomitant]

REACTIONS (5)
  - ABDOMINAL PAIN UPPER [None]
  - DIARRHOEA [None]
  - FAECES DISCOLOURED [None]
  - GASTRIC HAEMORRHAGE [None]
  - PRODUCT QUALITY ISSUE [None]
